FAERS Safety Report 19782708 (Version 2)
Quarter: 2021Q3

REPORT INFORMATION
  Report Type: Spontaneous
  Country: HR (occurrence: HR)
  Receive Date: 20210902
  Receipt Date: 20210907
  Transmission Date: 20211014
  Serious: Yes (Death, Hospitalization, Other)
  Sender: FDA-Public Use
  Company Number: HR-ABBVIE-21K-216-4060333-00

PATIENT
  Age: 66 Year
  Sex: Male

DRUGS (1)
  1. VENCLYXTO [Suspect]
     Active Substance: VENETOCLAX
     Indication: ACUTE MYELOID LEUKAEMIA
     Route: 048
     Dates: start: 202010, end: 202102

REACTIONS (8)
  - COVID-19 pneumonia [Fatal]
  - Mouth swelling [Unknown]
  - Aphthous ulcer [Unknown]
  - Melaena [Unknown]
  - General physical health deterioration [Unknown]
  - Off label use [Unknown]
  - Eye infection [Unknown]
  - Purpura [Unknown]

NARRATIVE: CASE EVENT DATE: 202010
